FAERS Safety Report 9664108 (Version 1)
Quarter: 2013Q4

REPORT INFORMATION
  Report Type: Spontaneous
  Country: US (occurrence: None)
  Receive Date: 20131030
  Receipt Date: 20131030
  Transmission Date: 20140711
  Serious: Yes (Hospitalization)
  Sender: FDA-Public Use
  Company Number: None

PATIENT
  Age: 9 Year
  Sex: Male
  Weight: 37.2 kg

DRUGS (1)
  1. OXYBUTYNIN ER [Suspect]
     Indication: NEUROGENIC BLADDER
     Dates: start: 201008, end: 201103

REACTIONS (2)
  - Urinary tract infection [None]
  - Convulsion [None]
